FAERS Safety Report 9972463 (Version 1)
Quarter: 2014Q1

REPORT INFORMATION
  Report Type: Report from Study
  Country: US (occurrence: US)
  Receive Date: 20140306
  Receipt Date: 20140306
  Transmission Date: 20141002
  Serious: No
  Sender: FDA-Public Use
  Company Number: US-ABBVIE-13P-163-1153911-00

PATIENT
  Age: 29 Year
  Sex: Female

DRUGS (2)
  1. HUMIRA [Suspect]
     Indication: COLITIS ULCERATIVE
     Dates: start: 201308
  2. IMURAN [Concomitant]
     Indication: COLITIS ULCERATIVE
     Dosage: 75MG DAILY
     Route: 048

REACTIONS (1)
  - Menstruation irregular [Not Recovered/Not Resolved]
